FAERS Safety Report 5201032-6 (Version None)
Quarter: 2007Q1

REPORT INFORMATION
  Report Type: 
  Country: None (occurrence: None)
  Receive Date: 20070108
  Receipt Date: 20070104
  Transmission Date: 20070707
  Serious: Yes (Disabling)
  Sender: FDA-Public Use
  Company Number: CZ-SP-2006-03630

PATIENT
  Age: 29 Year
  Sex: Male

DRUGS (1)
  1. IMMUCYST [Suspect]
     Indication: BLADDER CANCER
     Route: 043
     Dates: start: 20061114

REACTIONS (4)
  - BOVINE TUBERCULOSIS [None]
  - CHILLS [None]
  - FATIGUE [None]
  - PYREXIA [None]
